FAERS Safety Report 12912300 (Version 1)
Quarter: 2016Q4

REPORT INFORMATION
  Report Type: Spontaneous
  Country: CA (occurrence: CA)
  Receive Date: 20161104
  Receipt Date: 20161104
  Transmission Date: 20170207
  Serious: Yes (Life-Threatening, Hospitalization)
  Sender: FDA-Public Use
  Company Number: CA-JNJFOC-20160925953

PATIENT
  Age: 45 Year
  Sex: Female

DRUGS (1)
  1. INVOKANA [Suspect]
     Active Substance: CANAGLIFLOZIN
     Indication: DIABETES MELLITUS
     Route: 065

REACTIONS (5)
  - Septic shock [Unknown]
  - Urosepsis [Recovered/Resolved]
  - Acute kidney injury [Unknown]
  - Meningitis [Unknown]
  - Emphysematous pyelonephritis [Unknown]

NARRATIVE: CASE EVENT DATE: 20160610
